FAERS Safety Report 6459137-8 (Version None)
Quarter: 2009Q4

REPORT INFORMATION
  Report Type: 
  Country: None (occurrence: None)
  Receive Date: 20091127
  Receipt Date: 20091125
  Transmission Date: 20100525
  Serious: Yes (Death)
  Sender: FDA-Public Use
  Company Number: US-BRISTOL-MYERS SQUIBB COMPANY-14872105

PATIENT
  Age: 61 Year
  Sex: Female
  Weight: 50 kg

DRUGS (4)
  1. ERBITUX [Suspect]
     Indication: OESOPHAGEAL SQUAMOUS CELL CARCINOMA
     Dosage: LAST DOSE: 05MAY09
     Dates: start: 20090407
  2. TAXOL [Suspect]
     Indication: OESOPHAGEAL SQUAMOUS CELL CARCINOMA
     Dosage: LAST DOSE: 05MAY09
     Dates: start: 20090407
  3. CISPLATIN [Suspect]
     Indication: OESOPHAGEAL SQUAMOUS CELL CARCINOMA
     Dosage: LAST DOSE: 05MAY09
     Dates: start: 20090407
  4. RADIATION THERAPY [Suspect]
     Indication: OESOPHAGEAL SQUAMOUS CELL CARCINOMA
     Dosage: LAST DOSE: 15MAY09; 28FRACTIONS;ELAPSED DAYS 38; 1 DF= 54.32GY
     Dates: end: 20090515

REACTIONS (1)
  - DEATH [None]
